FAERS Safety Report 6092528-6 (Version None)
Quarter: 2009Q1

REPORT INFORMATION
  Report Type: 
  Country: None (occurrence: None)
  Receive Date: 20090225
  Receipt Date: 20090218
  Transmission Date: 20090719
  Serious: Yes (Hospitalization, Disabling)
  Sender: FDA-Public Use
  Company Number: JP-AVENTIS-200910461JP

PATIENT
  Age: 83 Year
  Sex: Female

DRUGS (1)
  1. DAONIL [Suspect]
     Indication: TYPE 2 DIABETES MELLITUS
     Route: 048
     Dates: start: 20030701, end: 20080722

REACTIONS (11)
  - ALTERED STATE OF CONSCIOUSNESS [None]
  - BEDRIDDEN [None]
  - BLOOD PRESSURE DECREASED [None]
  - CARDIAC DISORDER [None]
  - CORTICAL LAMINAR NECROSIS [None]
  - DIABETES MELLITUS INADEQUATE CONTROL [None]
  - HYPERSOMNIA [None]
  - HYPOGLYCAEMIC ENCEPHALOPATHY [None]
  - HYPOXIA [None]
  - RESPIRATORY DISORDER [None]
  - TREATMENT NONCOMPLIANCE [None]
